FAERS Safety Report 15757735 (Version 2)
Quarter: 2018Q4

REPORT INFORMATION
  Report Type: Spontaneous
  Country: VN (occurrence: VN)
  Receive Date: 20181225
  Receipt Date: 20181226
  Transmission Date: 20190205
  Serious: Yes (Other)
  Sender: FDA-Public Use
  Company Number: VN-ROCHE-2235669

PATIENT
  Age: 65 Year
  Sex: Male

DRUGS (3)
  1. OXALIPLATIN. [Suspect]
     Active Substance: OXALIPLATIN
     Indication: METASTATIC GASTRIC CANCER
     Route: 065
  2. EPIRUBICIN [Suspect]
     Active Substance: EPIRUBICIN
     Indication: METASTATIC GASTRIC CANCER
     Route: 065
  3. XELODA [Suspect]
     Active Substance: CAPECITABINE
     Indication: METASTATIC GASTRIC CANCER
     Dosage: 8 CYCLES
     Route: 065

REACTIONS (1)
  - Abdominal hernia [Unknown]
